FAERS Safety Report 19361190 (Version 2)
Quarter: 2022Q4

REPORT INFORMATION
  Report Type: Report from Study
  Country: ES (occurrence: ES)
  Receive Date: 20210603
  Receipt Date: 20221105
  Transmission Date: 20230113
  Serious: Yes (Hospitalization)
  Sender: FDA-Public Use
  Company Number: ES-CELLTRION INC.-2021ES007369

PATIENT

DRUGS (12)
  1. TRASTUZUMAB [Suspect]
     Active Substance: TRASTUZUMAB
     Indication: Breast cancer
     Dosage: 8 MG/KG (LOADING DOSE)
     Route: 042
     Dates: start: 20201201
  2. TRASTUZUMAB [Suspect]
     Active Substance: TRASTUZUMAB
     Dosage: 6 MG/KG (DATE OF MOST RECENT DOSE OF TRASTUZUMAB 437 MG PRIOR TO SAE ONSET: 01/DEC/2020)
     Route: 042
  3. PACLITAXEL [Suspect]
     Active Substance: PACLITAXEL
     Indication: Breast cancer
     Dosage: 90 MG/M2, (DATE OF MOST RECENT DOSE OF PACLITAXEL OF 139 MG PRIOR TO SAE ONSET: 08/DEC/2020)
     Route: 042
     Dates: start: 20201201
  4. CARBOPLATIN [Suspect]
     Active Substance: CARBOPLATIN
     Indication: Breast cancer
     Dosage: UNK, DATE OF MOST RECENT DOSE OF CARBOPLATIN OF 230 MG PRIOR TO SAE ONSET: 08/DEC/2020. ADMINISTERED
     Route: 042
     Dates: start: 20201201
  5. PERTUZUMAB [Suspect]
     Active Substance: PERTUZUMAB
     Indication: Breast cancer
     Dosage: 840 MG, (LOADING DOSE, MOST RECENT DOSE ON THE SAME DAY)
     Route: 042
     Dates: start: 20201201
  6. PERTUZUMAB [Suspect]
     Active Substance: PERTUZUMAB
     Dosage: 420 MG (MAINTAINANCE DOSE)
     Route: 042
     Dates: start: 20201201
  7. METOCLOPRAMIDE [Concomitant]
     Active Substance: METOCLOPRAMIDE
     Dosage: 10 MG, EVERY 8 HOURS
     Dates: start: 20201215, end: 20201215
  8. DEXAMETHASONE [Concomitant]
     Active Substance: DEXAMETHASONE
     Dosage: 4 MG, EVERY 24 HOURS
     Dates: start: 20201215, end: 20201215
  9. ACETAMINOPHEN [Concomitant]
     Active Substance: ACETAMINOPHEN
     Dosage: 500 MG, EVERY 8 HOURS
     Route: 048
     Dates: start: 20201215, end: 20201215
  10. METAMIZOLE MAGNESIUM [Concomitant]
     Active Substance: METAMIZOLE MAGNESIUM
     Dosage: 575 MG, EVERY 8 HOURS
     Route: 048
     Dates: start: 20201215, end: 20201215
  11. ONDANSETRON [Concomitant]
     Active Substance: ONDANSETRON
     Dosage: 4 MG, EVERY 8 HOURS
     Route: 048
     Dates: start: 20201215, end: 20201215
  12. MORPHINE [Concomitant]
     Active Substance: MORPHINE
     Dosage: 10 MG, EVERY 4 HOURS
     Route: 058
     Dates: start: 20201213, end: 20201215

REACTIONS (2)
  - Subileus [Recovered/Resolved]
  - Abdominal pain [Recovered/Resolved]

NARRATIVE: CASE EVENT DATE: 20201211
